FAERS Safety Report 20119341 (Version 2)
Quarter: 2022Q1

REPORT INFORMATION
  Report Type: Other
  Country: SG (occurrence: None)
  Receive Date: 20211126
  Receipt Date: 20220110
  Transmission Date: 20220423
  Serious: Yes (Hospitalization)
  Sender: FDA-Public Use
  Company Number: SG-ROCHE-2960595

PATIENT
  Age: 79 Year
  Sex: Male
  Weight: 73 kg

DRUGS (2)
  1. TECENTRIQ [Suspect]
     Active Substance: ATEZOLIZUMAB
     Indication: Non-small cell lung cancer
     Route: 041
     Dates: start: 20210826
  2. AVASTIN [Suspect]
     Active Substance: BEVACIZUMAB
     Indication: Non-small cell lung cancer
     Route: 042
     Dates: start: 20210826

REACTIONS (4)
  - Septic shock [Unknown]
  - Pneumonia [Unknown]
  - Alpha 1 foetoprotein increased [Unknown]
  - Treatment delayed [Unknown]

NARRATIVE: CASE EVENT DATE: 20211004
